FAERS Safety Report 9465562 (Version 2)
Quarter: 2014Q1

REPORT INFORMATION
  Report Type: Spontaneous
  Country: PH (occurrence: PH)
  Receive Date: 20130820
  Receipt Date: 20140221
  Transmission Date: 20141002
  Serious: Yes (Death, Other)
  Sender: FDA-Public Use
  Company Number: PH-MERCK-1308PHL007893

PATIENT
  Age: 72 Year
  Sex: Female

DRUGS (3)
  1. JANUMET [Suspect]
     Indication: DIABETES MELLITUS
     Dosage: ONE TABLET ONCE A DAY
     Route: 048
     Dates: start: 20121105
  2. GLICLAZIDE [Concomitant]
     Indication: DIABETES MELLITUS
  3. AMVASC (AMLODIPINE BESYLATE) [Concomitant]

REACTIONS (1)
  - Rectal cancer stage II [Fatal]
